FAERS Safety Report 4607215-8 (Version None)
Quarter: 2005Q1

REPORT INFORMATION
  Report Type: 
  Country: None (occurrence: None)
  Receive Date: 20050309
  Receipt Date: 20050218
  Transmission Date: 20050727
  Serious: Yes (Hospitalization)
  Sender: FDA-Public Use
  Company Number: US_0410107100

PATIENT
  Age: 50 Year
  Sex: Female
  Weight: 76 kg

DRUGS (3)
  1. HUMATROPE [Suspect]
     Indication: GROWTH HORMONE DEFICIENCY
     Dosage: 0.4 MG/1 DAY
     Dates: start: 20020819, end: 20040919
  2. SYNTHROID [Concomitant]
  3. ESTRADERM [Concomitant]

REACTIONS (7)
  - BLINDNESS TRANSIENT [None]
  - CONDITION AGGRAVATED [None]
  - HEADACHE [None]
  - HEMIANOPIA [None]
  - NEOPLASM PROGRESSION [None]
  - OPTIC ATROPHY [None]
  - VISUAL PATHWAY DISORDER [None]
